FAERS Safety Report 6375237-5 (Version None)
Quarter: 2009Q3

REPORT INFORMATION
  Report Type: 
  Country: None (occurrence: None)
  Receive Date: 20090924
  Receipt Date: 20090911
  Transmission Date: 20100115
  Serious: Yes (Other)
  Sender: FDA-Public Use
  Company Number: BR-PFIZER INC-2009268038

PATIENT
  Age: 38 Year

DRUGS (1)
  1. DEPO-PROVERA [Suspect]
     Dosage: 150 MG
     Route: 030
     Dates: start: 20030101

REACTIONS (4)
  - DIPLOPIA [None]
  - DIZZINESS [None]
  - VISUAL ACUITY REDUCED [None]
  - WEIGHT INCREASED [None]
